FAERS Safety Report 6120040-4 (Version None)
Quarter: 2009Q1

REPORT INFORMATION
  Report Type: 
  Country: None (occurrence: None)
  Receive Date: 20090316
  Receipt Date: 20090306
  Transmission Date: 20090719
  Serious: Yes (Hospitalization, Other)
  Sender: FDA-Public Use
  Company Number: DE-ELI_LILLY_AND_COMPANY-DE200902001945

PATIENT
  Sex: Female
  Weight: 52 kg

DRUGS (3)
  1. ALIMTA [Suspect]
     Indication: LUNG ADENOCARCINOMA
     Dosage: 500 MG/M2, UNK
     Route: 042
     Dates: start: 20081101
  2. DEXAMETHASONE [Concomitant]
     Indication: OEDEMA
     Dosage: 2 MG, UNK
     Route: 048
     Dates: start: 20081101
  3. LANSOPRAZOL [Concomitant]
     Indication: PROPHYLAXIS
     Dosage: 30 MG, UNK
     Route: 048
     Dates: start: 20081101

REACTIONS (3)
  - FACE OEDEMA [None]
  - HYPOPROTEINAEMIA [None]
  - PERIORBITAL OEDEMA [None]
